FAERS Safety Report 4690143-X (Version None)
Quarter: 2005Q2

REPORT INFORMATION
  Report Type: 
  Country: None (occurrence: None)
  Receive Date: 20050613
  Receipt Date: 20050530
  Transmission Date: 20051028
  Serious: Yes (Hospitalization)
  Sender: FDA-Public Use
  Company Number: SGB1-2005-00232

PATIENT
  Age: 67 Year
  Sex: Male

DRUGS (9)
  1. LANTHANUM CARBONATE(LANTHANUM CARBONATE UNK) TABLET CHEWABLE [Suspect]
     Indication: HYPERPHOSPHATAEMIA
     Dosage: 250 MG, 3X/DAY:TID, ORAL
     Route: 048
     Dates: start: 20050509
  2. GLYCYRON (GLYRRHIZIC ACID, DL-METHINONINE, AMINOACETIC ACID) [Concomitant]
  3. VITAMEDIN CAPSULE (PYRIDOXINE HYDROCHLORIDE, CYANOCOBALAMIN, BENFOTIAM [Concomitant]
  4. ALFAROL (ALFACALCIDOL) [Concomitant]
  5. ALESION (EPINASTINE HYDROCHLORIDE) [Concomitant]
  6. PENFILL R (INSULIN HUMAN) [Concomitant]
  7. CHICHINA (CARBAZOCHROME SODIUM SULFONATE) [Concomitant]
  8. KARY UNI (PIRENOXINE) [Concomitant]
  9. LEVOFLOXACIN [Concomitant]

REACTIONS (1)
  - VITREOUS HAEMORRHAGE [None]
